FAERS Safety Report 12241220 (Version 4)
Quarter: 2016Q3

REPORT INFORMATION
  Report Type: Spontaneous
  Country: US (occurrence: US)
  Receive Date: 20160406
  Receipt Date: 20160831
  Transmission Date: 20161109
  Serious: No
  Sender: FDA-Public Use
  Company Number: US-BRISTOL-MYERS SQUIBB COMPANY-BMS-2016-025777

PATIENT
  Sex: Female
  Weight: 50 kg

DRUGS (2)
  1. KENALOG-40 [Suspect]
     Active Substance: TRIAMCINOLONE ACETONIDE
     Indication: HYPERSENSITIVITY
     Dosage: 1 ML, UNK
     Route: 065
  2. KENALOG-40 [Suspect]
     Active Substance: TRIAMCINOLONE ACETONIDE
     Indication: SWELLING FACE
     Dosage: UNK
     Route: 065
     Dates: start: 20160106

REACTIONS (4)
  - Atrophy [Unknown]
  - Drug administration error [Unknown]
  - Injection site induration [Not Recovered/Not Resolved]
  - Injection site discolouration [Not Recovered/Not Resolved]
